FAERS Safety Report 5297771-1 (Version None)
Quarter: 2007Q2

REPORT INFORMATION
  Report Type: 
  Country: None (occurrence: None)
  Receive Date: 20070412
  Receipt Date: 20070412
  Transmission Date: 20071010
  Serious: No
  Sender: FDA-Public Use
  Company Number: None

PATIENT
  Age: 51 Year
  Sex: Female
  Weight: 60.782 kg

DRUGS (4)
  1. PALIFERMIN 6.25MG/VIAL AMGEN [Suspect]
     Indication: MUCOSAL INFLAMMATION
     Dosage: 3.5 MG DAILY IV
     Route: 036
     Dates: start: 20070403, end: 20070405
  2. PALIFERMIN 6.25MG/VIAL AMGEN [Suspect]
     Indication: PROPHYLAXIS
     Dosage: 3.5 MG DAILY IV
     Route: 036
     Dates: start: 20070403, end: 20070405
  3. PALIFERMIN 6.25MG/VIAL AMGEN [Suspect]
     Indication: MUCOSAL INFLAMMATION
     Dosage: 3.5 MG DAILY IV
     Route: 036
     Dates: start: 20070409, end: 20070410
  4. PALIFERMIN 6.25MG/VIAL AMGEN [Suspect]
     Indication: PROPHYLAXIS
     Dosage: 3.5 MG DAILY IV
     Route: 036
     Dates: start: 20070409, end: 20070410

REACTIONS (6)
  - ANGIOEDEMA [None]
  - DRY THROAT [None]
  - OBSTRUCTIVE AIRWAYS DISORDER [None]
  - PARAESTHESIA ORAL [None]
  - RASH [None]
  - WHEEZING [None]
